FAERS Safety Report 7102565-8 (Version None)
Quarter: 2010Q4

REPORT INFORMATION
  Report Type: 
  Country: None (occurrence: None)
  Receive Date: 20101115
  Receipt Date: 20101108
  Transmission Date: 20110411
  Serious: Yes (Death, Hospitalization, Other)
  Sender: FDA-Public Use
  Company Number: US-JNJFOC-20100106353

PATIENT
  Sex: Male
  Weight: 67.99 kg

DRUGS (23)
  1. DURAGESIC-100 [Suspect]
     Indication: PAIN
     Route: 062
  2. HYDROMORPHONE HCL [Suspect]
     Route: 048
  3. HYDROMORPHONE HCL [Suspect]
     Route: 048
  4. HYDROMORPHONE HCL [Suspect]
     Indication: PAIN
     Route: 048
  5. PREDNISONE [Suspect]
     Indication: PROSTATE CANCER
     Route: 048
  6. PALLADONE [Suspect]
     Indication: PAIN
     Route: 048
  7. SUNITINIB MALATE (SU-011,248) [Suspect]
     Indication: PROSTATE CANCER
     Route: 048
  8. PLACEBO [Suspect]
     Indication: PROSTATE CANCER
     Route: 048
  9. ZOMETA [Concomitant]
  10. LACTULOSE [Concomitant]
     Route: 065
  11. HALDOL [Concomitant]
     Indication: NAUSEA
     Route: 065
  12. NULYTELY [Concomitant]
     Indication: CONSTIPATION
     Route: 065
  13. METAMIZOLE [Concomitant]
     Indication: PAIN
     Route: 065
  14. LYRICA [Concomitant]
     Indication: PAIN
     Route: 065
  15. OMEPRAZOLE [Concomitant]
     Indication: GASTRITIS
     Route: 065
  16. PAROXETINE HCL [Concomitant]
     Indication: DEPRESSION
     Route: 065
  17. METOCLOPRAMIDE HYDROCHLORIDE [Concomitant]
     Indication: NAUSEA
     Route: 065
  18. KEVATRIL [Concomitant]
     Indication: NAUSEA
     Route: 065
  19. TAVOR [Concomitant]
     Indication: INSOMNIA
     Route: 065
  20. FUROSEMID [Concomitant]
     Indication: OEDEMA
     Route: 065
  21. SCOPOLAMINE [Concomitant]
     Indication: PAIN
     Route: 065
  22. AUGMENTIN '125' [Concomitant]
     Route: 065
  23. ZOLADEX [Concomitant]
     Route: 065

REACTIONS (8)
  - BLOOD CREATININE INCREASED [None]
  - DEHYDRATION [None]
  - DISEASE PROGRESSION [None]
  - HEPATOTOXICITY [None]
  - HYPONATRAEMIA [None]
  - MALIGNANT NEOPLASM PROGRESSION [None]
  - NARCOTIC INTOXICATION [None]
  - PROSTATE CANCER [None]
